FAERS Safety Report 10736165 (Version 1)
Quarter: 2015Q1

REPORT INFORMATION
  Report Type: Spontaneous
  Country: US (occurrence: None)
  Receive Date: 20150121
  Receipt Date: 20150121
  Transmission Date: 20150721
  Serious: Yes (Hospitalization, Other)
  Sender: FDA-Public Use
  Company Number: NSR_01750_2015

PATIENT
  Age: 19 Year
  Sex: Male

DRUGS (1)
  1. BACLOFEN. [Suspect]
     Active Substance: BACLOFEN
     Indication: CEREBRAL PALSY
     Dosage: (DF INTRATHECAL)
     Route: 037

REACTIONS (5)
  - Device kink [None]
  - Insomnia [None]
  - Priapism [None]
  - Hypertonia [None]
  - Drug withdrawal syndrome [None]
